FAERS Safety Report 20362024 (Version 1)
Quarter: 2022Q1

REPORT INFORMATION
  Report Type: Spontaneous
  Country: US (occurrence: None)
  Receive Date: 20220121
  Receipt Date: 20220121
  Transmission Date: 20220423
  Serious: Yes (Other)
  Sender: FDA-Public Use
  Company Number: 2022A029107

PATIENT
  Age: 79 Year
  Sex: Male
  Weight: 58.1 kg

DRUGS (5)
  1. SEROQUEL [Suspect]
     Active Substance: QUETIAPINE FUMARATE
     Dosage: ONE TABLET BY MOUTH AT BEDTIME
     Route: 048
     Dates: start: 20210322
  2. PFIZER-BIONTECH COVID-19 VACCINE [Suspect]
     Active Substance: TOZINAMERAN
     Route: 065
     Dates: start: 20220112
  3. KLONOPIN [Concomitant]
     Active Substance: CLONAZEPAM
     Dosage: ONE TABLET BY MOUTH TWICE DAY
     Route: 048
     Dates: start: 20210507
  4. ARCEPT [Concomitant]
     Route: 065
  5. RITUXIMAB [Concomitant]
     Active Substance: RITUXIMAB
     Route: 065

REACTIONS (14)
  - Hallucination [Unknown]
  - Paranoia [Unknown]
  - Agitation [Unknown]
  - Dysstasia [Unknown]
  - Brain hypoxia [Unknown]
  - Dementia [Unknown]
  - Weight decreased [Unknown]
  - Fall [Unknown]
  - Mental status changes [Unknown]
  - Cognitive disorder [Unknown]
  - Confusional state [Unknown]
  - Dizziness [Unknown]
  - Fatigue [Unknown]
  - Drug ineffective [Unknown]
